FAERS Safety Report 8370317-7 (Version None)
Quarter: 2012Q2

REPORT INFORMATION
  Report Type: 
  Country: None (occurrence: None)
  Receive Date: 20120518
  Receipt Date: 20111129
  Transmission Date: 20120825
  Serious: No
  Sender: FDA-Public Use
  Company Number: US-ASTRAZENECA-2011SE50229

PATIENT
  Age: 57 Year
  Sex: Female

DRUGS (14)
  1. MULTI-VITAMIN [Concomitant]
     Route: 048
  2. SILYBUM MARIANUM [Concomitant]
     Route: 048
  3. ZOLPIDEM TARTRATE [Concomitant]
     Route: 048
  4. POTASSIUM CHLORIDE [Concomitant]
     Route: 048
  5. EVISTA [Concomitant]
     Route: 048
  6. LORATADINE [Concomitant]
     Indication: MULTIPLE ALLERGIES
     Route: 048
  7. LACTOBACILLUS ACIDOPHILUS [Concomitant]
     Route: 048
  8. PRILOSEC OTC [Suspect]
     Indication: GASTROOESOPHAGEAL REFLUX DISEASE
     Route: 048
     Dates: start: 20060101, end: 20110413
  9. SUDOGEST [Concomitant]
     Route: 048
  10. ALPRAZOLAM [Concomitant]
     Route: 048
  11. NYSTATIN [Interacting]
     Indication: FUNGAL INFECTION
     Dosage: UNK DOSE, 1 /DAY
     Route: 048
     Dates: start: 19910101
  12. VITAMIN D [Concomitant]
  13. ZINC CHELATE [Concomitant]
     Route: 048
  14. PREMPRO [Concomitant]
     Dosage: 0.45-1.5 MG, 1/DAY
     Route: 048

REACTIONS (32)
  - WEIGHT DECREASED [None]
  - PSYCHIATRIC SYMPTOM [None]
  - LETHARGY [None]
  - OEDEMA [None]
  - DEPRESSION [None]
  - MUSCLE DISORDER [None]
  - SECRETION DISCHARGE [None]
  - DIZZINESS [None]
  - AMNESIA [None]
  - NERVOUSNESS [None]
  - DISCOMFORT [None]
  - OBSESSIVE THOUGHTS [None]
  - OEDEMA PERIPHERAL [None]
  - MYALGIA [None]
  - VOMITING [None]
  - MALAISE [None]
  - DRUG INTERACTION [None]
  - SENSORY LOSS [None]
  - CONDITION AGGRAVATED [None]
  - IMPAIRED HEALING [None]
  - PAIN IN EXTREMITY [None]
  - IRRITABILITY [None]
  - HOT FLUSH [None]
  - FEELING COLD [None]
  - DECREASED APPETITE [None]
  - DISTURBANCE IN ATTENTION [None]
  - FALL [None]
  - PARAESTHESIA [None]
  - HYPOAESTHESIA [None]
  - PHARYNGEAL DISORDER [None]
  - DRY THROAT [None]
  - ERYTHEMA [None]
